FAERS Safety Report 14313436 (Version 3)
Quarter: 2022Q3

REPORT INFORMATION
  Report Type: Spontaneous
  Country: JP (occurrence: None)
  Receive Date: 20171221
  Receipt Date: 20220923
  Transmission Date: 20221027
  Serious: Yes (Death)
  Sender: FDA-Public Use
  Company Number: JP-EISAI MEDICAL RESEARCH-EC-2017-034413

PATIENT
  Age: 26 Year
  Sex: Male
  Weight: 64 kg

DRUGS (12)
  1. FYCOMPA [Suspect]
     Active Substance: PERAMPANEL
     Indication: Epilepsy
     Dates: start: 20170420, end: 20170916
  2. FYCOMPA [Suspect]
     Active Substance: PERAMPANEL
     Dates: start: 20170917, end: 20171023
  3. PHENOBARBITAL [Concomitant]
     Active Substance: PHENOBARBITAL
     Indication: Seizure
     Route: 048
     Dates: start: 20170101, end: 20171023
  4. LEVETIRACETAM [Concomitant]
     Active Substance: LEVETIRACETAM
     Indication: Seizure
     Route: 048
     Dates: start: 20170101, end: 20171023
  5. TSUMURA HOCHUKKITO EXTRACT GRANULES FOR ETHICAL USE [Concomitant]
     Indication: Infection
     Route: 048
     Dates: start: 20170101, end: 20171023
  6. SODIUM CHLORIDE [Concomitant]
     Active Substance: SODIUM CHLORIDE
     Indication: Hyponatraemia
     Route: 048
     Dates: start: 20170101, end: 20171023
  7. FAMOTIDINE [Concomitant]
     Active Substance: FAMOTIDINE
     Indication: Gastritis prophylaxis
     Route: 048
     Dates: start: 20170101, end: 20171023
  8. ALLELOCK [Concomitant]
     Active Substance: OLOPATADINE HYDROCHLORIDE
     Indication: Hypersensitivity
     Route: 048
     Dates: start: 20170101, end: 20171023
  9. PRANLUKAST [Concomitant]
     Active Substance: PRANLUKAST
     Indication: Hypersensitivity
     Route: 048
     Dates: start: 20170101, end: 20171023
  10. SULFAMETHOXAZOLE\TRIMETHOPRIM [Concomitant]
     Active Substance: SULFAMETHOXAZOLE\TRIMETHOPRIM
     Indication: Urinary tract infection
     Route: 048
     Dates: start: 20170101, end: 20171023
  11. URAPIDIL [Concomitant]
     Active Substance: URAPIDIL
     Indication: Product used for unknown indication
     Route: 048
     Dates: start: 20170101, end: 20171023
  12. ENSURE [Concomitant]
     Active Substance: AMINO ACIDS\DEXTROSE\ELECTROLYTES NOS\SOYBEAN OIL\VITAMINS
     Indication: Nutritional supplementation
     Route: 048
     Dates: start: 20170101, end: 20171023

REACTIONS (1)
  - Sudden unexplained death in epilepsy [Fatal]

NARRATIVE: CASE EVENT DATE: 20171023
